FAERS Safety Report 5070069-2 (Version None)
Quarter: 2006Q3

REPORT INFORMATION
  Report Type: 
  Country: None (occurrence: None)
  Receive Date: 20060731
  Receipt Date: 20060719
  Transmission Date: 20061208
  Serious: Yes (Hospitalization)
  Sender: FDA-Public Use
  Company Number: 2006090084

PATIENT
  Age: 63 Year
  Sex: Female

DRUGS (2)
  1. ALPRAZOLAM [Suspect]
     Indication: MENTAL DISORDER
     Dosage: ORAL
     Route: 048
  2. ANTIHYPERTENSIVES (ANTIHYPERTENSIVES) [Concomitant]

REACTIONS (16)
  - ABDOMINAL DISCOMFORT [None]
  - ANXIETY [None]
  - APATHY [None]
  - CHEST DISCOMFORT [None]
  - EPIGASTRIC DISCOMFORT [None]
  - HEADACHE [None]
  - HEART RATE IRREGULAR [None]
  - HOT FLUSH [None]
  - HYPOAESTHESIA [None]
  - MALAISE [None]
  - MUSCULOSKELETAL STIFFNESS [None]
  - PALPITATIONS [None]
  - PANIC DISORDER [None]
  - PULSE PRESSURE DECREASED [None]
  - SENSATION OF FOREIGN BODY [None]
  - SENSATION OF PRESSURE [None]
